FAERS Safety Report 16278747 (Version 4)
Quarter: 2019Q2

REPORT INFORMATION
  Report Type: Spontaneous
  Country: US (occurrence: US)
  Receive Date: 20190506
  Receipt Date: 20190524
  Transmission Date: 20190711
  Serious: No
  Sender: FDA-Public Use
  Company Number: US-009507513-1905USA001882

PATIENT
  Sex: Female
  Weight: 70.99 kg

DRUGS (2)
  1. NEXPLANON [Suspect]
     Active Substance: ETONOGESTREL
     Indication: CONTRACEPTION
     Dosage: IMPLANT IN THE LEFT ARM
     Route: 059
     Dates: start: 20180828
  2. NEXPLANON [Suspect]
     Active Substance: ETONOGESTREL
     Dosage: 1 IMPLANT
     Route: 059
     Dates: end: 201808

REACTIONS (3)
  - Product dose omission [Unknown]
  - Weight increased [Not Recovered/Not Resolved]
  - Complication associated with device [Not Recovered/Not Resolved]
